FAERS Safety Report 23277099 (Version 1)
Quarter: 2023Q4

REPORT INFORMATION
  Report Type: Spontaneous
  Country: US (occurrence: US)
  Receive Date: 20231208
  Receipt Date: 20231208
  Transmission Date: 20240110
  Serious: Yes (Other)
  Sender: FDA-Public Use
  Company Number: US-AMERICAN REGENT INC-2023001784

PATIENT
  Age: 52 Year
  Sex: Female

DRUGS (2)
  1. VENOFER [Suspect]
     Active Substance: IRON SUCROSE
     Indication: Iron deficiency anaemia
     Dosage: 500 MILLIGRAM IN NS 250 ML INFUSED OVER 4 HOURS
     Route: 042
     Dates: start: 20230724, end: 20230724
  2. VENOFER [Suspect]
     Active Substance: IRON SUCROSE
     Indication: Chronic kidney disease

REACTIONS (2)
  - Infusion related reaction [Recovered/Resolved]
  - Product quality issue [Unknown]

NARRATIVE: CASE EVENT DATE: 20230724
